FAERS Safety Report 12385101 (Version 1)
Quarter: 2016Q2

REPORT INFORMATION
  Report Type: Spontaneous
  Country: US (occurrence: US)
  Receive Date: 20160519
  Receipt Date: 20160519
  Transmission Date: 20160815
  Serious: No
  Sender: FDA-Public Use
  Company Number: US-BAYER-2016-096295

PATIENT
  Age: 79 Year
  Sex: Male
  Weight: 84.35 kg

DRUGS (10)
  1. AGGRENOX [Concomitant]
     Active Substance: ASPIRIN\DIPYRIDAMOLE
  2. ASS LICH [Concomitant]
  3. GLUCOSAMIN [Concomitant]
  4. CARBIDOPA W/LEVODOPA [Concomitant]
     Active Substance: CARBIDOPA\LEVODOPA
  5. FISH OIL [Concomitant]
     Active Substance: FISH OIL
  6. CITALOPRAM [Concomitant]
     Active Substance: CITALOPRAM HYDROBROMIDE
  7. MIRALAX [Suspect]
     Active Substance: POLYETHYLENE GLYCOL 3350
     Indication: CONSTIPATION
     Dosage: 1 DF, QD
     Route: 048
     Dates: start: 20160502
  8. NAMENDA [Concomitant]
     Active Substance: MEMANTINE HYDROCHLORIDE
  9. CRESTOR [Concomitant]
     Active Substance: ROSUVASTATIN CALCIUM
  10. VITAMIN D [Concomitant]
     Active Substance: CHOLECALCIFEROL

REACTIONS (1)
  - Product use issue [None]

NARRATIVE: CASE EVENT DATE: 20160502
